FAERS Safety Report 10239750 (Version 1)
Quarter: 2014Q2

REPORT INFORMATION
  Report Type: Report from Study
  Country: US (occurrence: US)
  Receive Date: 20140616
  Receipt Date: 20140616
  Transmission Date: 20141212
  Serious: Yes (Other)
  Sender: FDA-Public Use
  Company Number: US-B.I. PHARMACEUTICALS,INC./RIDGEFIELD-2014-BI-26074II

PATIENT
  Age: 65 Year
  Sex: Female
  Weight: 43.6 kg

DRUGS (6)
  1. AFATINIB [Suspect]
     Indication: LUNG NEOPLASM MALIGNANT
     Dosage: 40 MG
     Route: 048
     Dates: start: 20140512, end: 20140606
  2. DASATINIB [Suspect]
     Indication: LUNG NEOPLASM MALIGNANT
     Dosage: 100 MG
     Route: 048
     Dates: start: 20140519, end: 20140606
  3. COMPAZINE [Concomitant]
     Indication: NAUSEA
     Dosage: 10 MG
     Route: 048
  4. MAGIC MOUTHWASH [Concomitant]
     Indication: STOMATITIS
     Dosage: 10 ML
     Route: 048
  5. VICODIN [Concomitant]
     Indication: PAIN
     Route: 048
  6. FENTANYL [Concomitant]
     Indication: PAIN
     Dosage: 25 MCG
     Route: 062

REACTIONS (1)
  - Diarrhoea [Recovered/Resolved]
